FAERS Safety Report 7525335-5 (Version None)
Quarter: 2011Q2

REPORT INFORMATION
  Report Type: 
  Country: None (occurrence: None)
  Receive Date: 20110606
  Receipt Date: 20110525
  Transmission Date: 20111010
  Serious: Yes (Hospitalization, Other)
  Sender: FDA-Public Use
  Company Number: US-ELI_LILLY_AND_COMPANY-US201101004172

PATIENT
  Sex: Female

DRUGS (5)
  1. FOLIC ACID [Concomitant]
     Indication: MULTIPLE MYELOMA
     Dosage: 1 MG, QD
     Dates: start: 20100601
  2. PREDNISONE [Concomitant]
     Dosage: UNK
  3. ALIMTA [Suspect]
     Indication: MULTIPLE MYELOMA
     Dosage: UNK, UNKNOWN
     Route: 065
     Dates: start: 20100601
  4. DECADRON [Concomitant]
     Dosage: UNK
  5. VITAMIN B-12 [Concomitant]
     Indication: MULTIPLE MYELOMA
     Dosage: 1000 UG, UNK
     Dates: start: 20100601

REACTIONS (1)
  - PERICARDIAL EFFUSION [None]
